FAERS Safety Report 19983113 (Version 2)
Quarter: 2021Q4

REPORT INFORMATION
  Report Type: Spontaneous
  Country: US (occurrence: US)
  Receive Date: 20211021
  Receipt Date: 20211025
  Transmission Date: 20220304
  Serious: Yes (Other)
  Sender: FDA-Public Use
  Company Number: NVSC2021US233680

PATIENT
  Age: 44 Year
  Sex: Male

DRUGS (1)
  1. MAYZENT [Suspect]
     Active Substance: SIPONIMOD
     Indication: Secondary progressive multiple sclerosis
     Dosage: UNK
     Route: 065
     Dates: start: 201911

REACTIONS (5)
  - Erectile dysfunction [Unknown]
  - Micturition urgency [Unknown]
  - Coordination abnormal [Unknown]
  - Aphasia [Unknown]
  - Lymphocyte count decreased [Unknown]
